FAERS Safety Report 7334251-3 (Version None)
Quarter: 2011Q1

REPORT INFORMATION
  Report Type: 
  Country: None (occurrence: None)
  Receive Date: 20110307
  Receipt Date: 20110221
  Transmission Date: 20110831
  Serious: Yes (Hospitalization)
  Sender: FDA-Public Use
  Company Number: IT-JNJFOC-20101204060

PATIENT
  Sex: Male
  Weight: 78.7 kg

DRUGS (9)
  1. RISPERDAL [Suspect]
     Route: 030
  2. RISPERDAL [Suspect]
     Indication: SCHIZOPHRENIA
     Route: 030
  3. RISPERDAL [Suspect]
     Route: 048
  4. RISPERDAL [Suspect]
     Route: 048
  5. RISPERDAL [Suspect]
     Indication: SCHIZOPHRENIA
     Route: 048
  6. DEPAKENE [Concomitant]
     Indication: SCHIZOPHRENIA
     Route: 048
  7. EN [Concomitant]
     Indication: ANXIETY
     Route: 048
  8. RISPERDAL [Suspect]
     Route: 030
  9. TRIATEC [Concomitant]
     Indication: HYPERTENSION

REACTIONS (1)
  - TREATMENT NONCOMPLIANCE [None]
